FAERS Safety Report 22764868 (Version 2)
Quarter: 2023Q4

REPORT INFORMATION
  Report Type: Spontaneous
  Country: US (occurrence: US)
  Receive Date: 20230731
  Receipt Date: 20231005
  Transmission Date: 20240110
  Serious: No
  Sender: FDA-Public Use
  Company Number: US-Vifor (International) Inc.-VIT-2023-05352

PATIENT
  Age: 83 Year
  Sex: Male
  Weight: 80.5 kg

DRUGS (12)
  1. MIRCERA [Suspect]
     Active Substance: METHOXY POLYETHYLENE GLYCOL-EPOETIN BETA
     Indication: Anaemia
     Dates: start: 20220609
  2. MIRCERA [Suspect]
     Active Substance: METHOXY POLYETHYLENE GLYCOL-EPOETIN BETA
     Dosage: DOSE NUMBER: 19?DOSE 16-20
     Dates: start: 20230607, end: 2023
  3. VENOFER [Suspect]
     Active Substance: IRON SUCROSE
     Indication: Product used for unknown indication
     Route: 042
     Dates: start: 20230315
  4. VELPHORO [Suspect]
     Active Substance: SUCROFERRIC OXYHYDROXIDE
     Indication: Product used for unknown indication
     Dosage: WITH MEALS
     Route: 048
  5. VITAMIN B12 [Concomitant]
     Active Substance: CYANOCOBALAMIN
     Route: 048
  6. VITAMIN B12 [Concomitant]
     Active Substance: CYANOCOBALAMIN
     Dosage: TAKE 1 TABLET UNDER TONGUE ONCE A DAY
  7. IRON [Concomitant]
     Active Substance: IRON
     Dosage: 325 MG (65 MG IRON) TABLET
     Route: 048
  8. LACTULOSE [Concomitant]
     Active Substance: LACTULOSE
     Dosage: 10 GRAM/15 RNL (15 ML)
     Route: 048
  9. VITAMINS [Concomitant]
     Active Substance: VITAMINS
     Route: 048
  10. SENOKOT-S [Concomitant]
     Active Substance: DOCUSATE SODIUM\SENNOSIDES
     Dosage: 8.6 MG-50 MG TABLET ;1 TABLET BY MOUTH ONCE A DAY AS NEEDED.
     Route: 048
  11. VITAMIN C [Concomitant]
     Active Substance: ASCORBIC ACID
     Route: 048
  12. ZINC GLUCONATE [Concomitant]
     Active Substance: ZINC GLUCONATE
     Route: 048

REACTIONS (4)
  - Drug hypersensitivity [Recovered/Resolved]
  - Pruritus [Recovered/Resolved]
  - Inappropriate schedule of product administration [Unknown]
  - Contraindicated product administered [Unknown]

NARRATIVE: CASE EVENT DATE: 20220101
